FAERS Safety Report 10965755 (Version 2)
Quarter: 2015Q2

REPORT INFORMATION
  Report Type: Spontaneous
  Country: DE (occurrence: DE)
  Receive Date: 20150330
  Receipt Date: 20150403
  Transmission Date: 20150821
  Serious: Yes (Death, Hospitalization, Other)
  Sender: FDA-Public Use
  Company Number: DE-AMGEN-DEUSP2015029111

PATIENT
  Age: 42 Year
  Sex: Male

DRUGS (2)
  1. VEMURAFENIB [Concomitant]
     Active Substance: VEMURAFENIB
     Indication: HAIRY CELL LEUKAEMIA
     Dosage: UNK
  2. FILGRASTIM [Suspect]
     Active Substance: FILGRASTIM
     Indication: PRODUCT USED FOR UNKNOWN INDICATION
     Dosage: UNK
     Route: 065

REACTIONS (10)
  - Erythropoiesis abnormal [Unknown]
  - Pulmonary thrombosis [Unknown]
  - Hepatomegaly [Unknown]
  - Drug ineffective [Unknown]
  - Splenic infection fungal [Unknown]
  - Splenomegaly [Unknown]
  - Respiratory failure [Fatal]
  - Respiratory tract infection fungal [Unknown]
  - Hairy cell leukaemia [Not Recovered/Not Resolved]
  - Splenic infarction [Unknown]
